FAERS Safety Report 16666498 (Version 2)
Quarter: 2019Q3

REPORT INFORMATION
  Report Type: Spontaneous
  Country: GB (occurrence: GB)
  Receive Date: 20190805
  Receipt Date: 20190823
  Transmission Date: 20191004
  Serious: Yes (Death, Hospitalization, Other)
  Sender: FDA-Public Use
  Company Number: GB-SA-2019SA209451

PATIENT
  Age: 49 Year
  Sex: Female

DRUGS (2)
  1. CARBAMAZEPINE. [Concomitant]
     Active Substance: CARBAMAZEPINE
     Indication: FACIAL NEURALGIA
     Dosage: 200 MG, BID
  2. AUBAGIO [Suspect]
     Active Substance: TERIFLUNOMIDE
     Dosage: UNK
     Dates: start: 20151006, end: 20190618

REACTIONS (8)
  - Hepatic infection [Unknown]
  - Sepsis [Fatal]
  - Spleen disorder [Unknown]
  - Blood alkaline phosphatase increased [Unknown]
  - Kidney infection [Unknown]
  - Gamma-glutamyltransferase increased [Unknown]
  - Cholecystitis infective [Unknown]
  - Diarrhoea [Unknown]

NARRATIVE: CASE EVENT DATE: 2018
